FAERS Safety Report 22971727 (Version 2)
Quarter: 2023Q4

REPORT INFORMATION
  Report Type: Report from Study
  Country: US (occurrence: US)
  Receive Date: 20230922
  Receipt Date: 20231219
  Transmission Date: 20240110
  Serious: Yes (Hospitalization, Other)
  Sender: FDA-Public Use
  Company Number: US-SA-SAC20230920001613

PATIENT
  Age: 53 Year
  Sex: Female

DRUGS (1)
  1. DUPILUMAB [Suspect]
     Active Substance: DUPILUMAB
     Indication: Asthma
     Dosage: 300 MG,  OTHER
     Route: 058
     Dates: start: 202303, end: 2023

REACTIONS (3)
  - Circulatory collapse [Unknown]
  - Thrombosis [Unknown]
  - Blister [Unknown]

NARRATIVE: CASE EVENT DATE: 20230906
